FAERS Safety Report 17950853 (Version 2)
Quarter: 2020Q3

REPORT INFORMATION
  Report Type: Spontaneous
  Country: JP (occurrence: JP)
  Receive Date: 20200626
  Receipt Date: 20200707
  Transmission Date: 20201103
  Serious: Yes (Other)
  Sender: FDA-Public Use
  Company Number: JP-ALLERGAN-2024107US

PATIENT
  Sex: Male

DRUGS (1)
  1. URSODEOXYCHOLIC ACID ? BP [Suspect]
     Active Substance: URSODIOL
     Indication: LIVER DISORDER
     Route: 048

REACTIONS (2)
  - Cholecystectomy [Unknown]
  - Off label use [Unknown]
